FAERS Safety Report 24866244 (Version 1)
Quarter: 2025Q1

REPORT INFORMATION
  Report Type: Spontaneous
  Country: AT (occurrence: AT)
  Receive Date: 20250121
  Receipt Date: 20250121
  Transmission Date: 20250409
  Serious: Yes (Other)
  Sender: TEVA
  Company Number: AT-CHEPLA-2024015645

PATIENT
  Sex: Male

DRUGS (1)
  1. QUETIAPINE [Suspect]
     Active Substance: QUETIAPINE
     Indication: Sleep disorder
     Route: 065
     Dates: start: 202404

REACTIONS (10)
  - Substance-induced psychotic disorder [Unknown]
  - Contusion [Not Recovered/Not Resolved]
  - Hair growth abnormal [Unknown]
  - Product dose confusion [Recovered/Resolved]
  - Visual impairment [Unknown]
  - Off label use [Recovered/Resolved]
  - Asthenia [Unknown]
  - Loss of libido [Unknown]
  - Vasodilatation [Unknown]
  - Dizziness [Unknown]
